FAERS Safety Report 11937494 (Version 2)
Quarter: 2016Q2

REPORT INFORMATION
  Report Type: Spontaneous
  Country: US (occurrence: US)
  Receive Date: 20160121
  Receipt Date: 20160601
  Transmission Date: 20160815
  Serious: No
  Sender: FDA-Public Use
  Company Number: US-BIOGEN-2016BI00172648

PATIENT
  Sex: Female

DRUGS (2)
  1. AMPYRA [Concomitant]
     Active Substance: DALFAMPRIDINE
     Indication: GAIT DISTURBANCE
     Route: 065
  2. PLEGRIDY [Suspect]
     Active Substance: PEGINTERFERON BETA-1A
     Indication: MULTIPLE SCLEROSIS
     Dates: start: 20150914

REACTIONS (12)
  - Bladder disorder [Unknown]
  - Constipation [Unknown]
  - Burning sensation [Unknown]
  - Paraesthesia [Unknown]
  - Hypoaesthesia [Unknown]
  - Fatigue [Not Recovered/Not Resolved]
  - Multiple sclerosis relapse [Unknown]
  - Memory impairment [Unknown]
  - Optic neuritis [Unknown]
  - Muscular weakness [Unknown]
  - Gait disturbance [Unknown]
  - Insomnia [Unknown]
